FAERS Safety Report 9518556 (Version 1)
Quarter: 2013Q1

REPORT INFORMATION
  Report Type: Spontaneous
  Country: US (occurrence: None)
  Receive Date: 20130305
  Receipt Date: 20130305
  Transmission Date: 20140127
  Serious: Yes (Other)
  Sender: FDA-Public Use
  Company Number: 163-21880-1208313

PATIENT
  Age: 70 Year
  Sex: Male

DRUGS (3)
  1. REVLIMID (LENALIDOMIDE) (CAPSULES) [Suspect]
     Indication: WALDENSTROM^S MACROGLOBULINAEMIA
     Dosage: 10 MG, 21 IN 28 D, PO
     Route: 048
  2. TYLENOL (PARACETAMOL) [Concomitant]
  3. VITAMINS [Concomitant]

REACTIONS (1)
  - Drug dose omission [None]
